FAERS Safety Report 8034298-8 (Version None)
Quarter: 2012Q1

REPORT INFORMATION
  Report Type: 
  Country: None (occurrence: None)
  Receive Date: 20120110
  Receipt Date: 20120105
  Transmission Date: 20120608
  Serious: Yes (Other)
  Sender: FDA-Public Use
  Company Number: PHHY2012FR001212

PATIENT
  Sex: Male

DRUGS (11)
  1. TASIGNA [Suspect]
     Indication: ACUTE LYMPHOCYTIC LEUKAEMIA
     Dosage: 400 MG, BID
     Route: 048
     Dates: start: 20111222
  2. METHOTREXATE [Concomitant]
     Dosage: UNK UKN, UNK
     Dates: start: 20111222
  3. METHOTREXATE [Concomitant]
     Dosage: UNK UKN, UNK
     Dates: start: 20120105
  4. CYTARABINE [Concomitant]
     Dosage: UNK UKN, UNK
     Dates: start: 20111222
  5. VINCRISTINE [Concomitant]
     Dosage: UNK UKN, UNK
     Dates: start: 20111229
  6. TASIGNA [Suspect]
     Dosage: 600 MG, DAILY
     Route: 048
     Dates: start: 20120105
  7. METHOTREXATE [Concomitant]
     Dosage: UNK UKN, UNK
     Dates: start: 20111229
  8. CYTARABINE [Concomitant]
     Dosage: UNK UKN, UNK
     Dates: start: 20120105
  9. METHYLPREDNISOLONE [Concomitant]
     Dosage: UNK UKN, UNK
     Dates: start: 20111229
  10. VINCRISTINE [Concomitant]
     Dosage: UNK UKN, UNK
     Dates: start: 20111222
  11. CYTARABINE [Concomitant]
     Dosage: UNK UKN, UNK
     Dates: start: 20111229

REACTIONS (6)
  - ALANINE AMINOTRANSFERASE INCREASED [None]
  - GAMMA-GLUTAMYLTRANSFERASE INCREASED [None]
  - LIVER DISORDER [None]
  - ASPARTATE AMINOTRANSFERASE INCREASED [None]
  - BILIRUBIN CONJUGATED INCREASED [None]
  - BLOOD BILIRUBIN INCREASED [None]
